FAERS Safety Report 21824401 (Version 1)
Quarter: 2023Q1

REPORT INFORMATION
  Report Type: Spontaneous
  Country: US (occurrence: None)
  Receive Date: 20230105
  Receipt Date: 20230105
  Transmission Date: 20230417
  Serious: No
  Sender: FDA-Public Use
  Company Number: None

PATIENT
  Age: 81 Year
  Sex: Female
  Weight: 68.04 kg

DRUGS (2)
  1. TALTZ [Suspect]
     Active Substance: IXEKIZUMAB
     Indication: Psoriasis
     Dosage: OTHER QUANTITY : 80MG (1 PEN);?FREQUENCY : AS DIRECTED;?
     Route: 058
     Dates: start: 202209
  2. TALTZ [Suspect]
     Active Substance: IXEKIZUMAB
     Indication: Dermatitis atopic

REACTIONS (4)
  - Fall [None]
  - Hip fracture [None]
  - COVID-19 [None]
  - Pulmonary embolism [None]
